APPROVED DRUG PRODUCT: CIPROFLOXACIN IN DEXTROSE 5%
Active Ingredient: CIPROFLOXACIN
Strength: 200MG/100ML
Dosage Form/Route: INJECTABLE;INJECTION
Application: A076757 | Product #001
Applicant: HIKMA FARMACEUTICA (PORTUGAL) SA
Approved: Apr 21, 2008 | RLD: No | RS: No | Type: DISCN